FAERS Safety Report 8616835-5 (Version None)
Quarter: 2012Q3

REPORT INFORMATION
  Report Type: 
  Country: None (occurrence: None)
  Receive Date: 20120823
  Receipt Date: 20120817
  Transmission Date: 20120928
  Serious: Yes (Other)
  Sender: FDA-Public Use
  Company Number: AU-JNJFOC-20120809918

PATIENT
  Sex: Male

DRUGS (5)
  1. STELARA [Suspect]
     Indication: PSORIASIS
     Route: 058
     Dates: start: 20120514
  2. STELARA [Suspect]
     Route: 058
     Dates: start: 20120817
  3. STELARA [Suspect]
     Route: 058
     Dates: start: 20120227
  4. STELARA [Suspect]
     Route: 058
     Dates: start: 20111031
  5. STELARA [Suspect]
     Route: 058
     Dates: start: 20111127

REACTIONS (2)
  - LOWER RESPIRATORY TRACT INFECTION [None]
  - INFLUENZA [None]
